FAERS Safety Report 9241024 (Version 1)
Quarter: 2013Q2

REPORT INFORMATION
  Report Type: Spontaneous
  Country: US (occurrence: US)
  Receive Date: 20130419
  Receipt Date: 20130419
  Transmission Date: 20140414
  Serious: No
  Sender: FDA-Public Use
  Company Number: US-009507513-1304USA007265

PATIENT
  Age: 22 Year
  Sex: Female

DRUGS (2)
  1. NUVARING [Suspect]
     Indication: MENSTRUATION IRREGULAR
     Dosage: 4 WEEKS IN, FOLLOWED BY ANOTHER 4 WEEKS, 1 RING
     Route: 067
     Dates: start: 201301
  2. NUVARING [Suspect]
     Indication: CONTRACEPTION

REACTIONS (4)
  - Metrorrhagia [Unknown]
  - Drug administration error [Unknown]
  - Medication error [Unknown]
  - Inappropriate schedule of drug administration [Unknown]
